FAERS Safety Report 14651234 (Version 2)
Quarter: 2018Q2

REPORT INFORMATION
  Report Type: Spontaneous
  Country: US (occurrence: US)
  Receive Date: 20180316
  Receipt Date: 20180511
  Transmission Date: 20180711
  Serious: Yes (Hospitalization)
  Sender: FDA-Public Use
  Company Number: US-BAUSCH-2012P1031699

PATIENT
  Age: 68 Year
  Sex: Female

DRUGS (2)
  1. LASIX [Suspect]
     Active Substance: FUROSEMIDE
     Indication: OEDEMA PERIPHERAL
     Route: 065
  2. NEBULIZED ALBUTEROL [Suspect]
     Active Substance: ALBUTEROL
     Indication: ASTHMA
     Dosage: AT LEAST 8 TIMES IN 2 HOURS.
     Route: 049

REACTIONS (9)
  - Heart rate increased [Unknown]
  - Therapeutic response decreased [Unknown]
  - Ventricular extrasystoles [Unknown]
  - Ventricular tachycardia [Recovered/Resolved]
  - Wheezing [Recovered/Resolved]
  - Pallor [Unknown]
  - Hypokalaemia [Recovered/Resolved]
  - Oedema peripheral [Unknown]
  - Respiratory rate increased [Unknown]

NARRATIVE: CASE EVENT DATE: 20061019
